FAERS Safety Report 7342865-X (Version None)
Quarter: 2011Q1

REPORT INFORMATION
  Report Type: 
  Country: None (occurrence: None)
  Receive Date: 20110310
  Receipt Date: 20110302
  Transmission Date: 20110831
  Serious: Yes (Hospitalization)
  Sender: FDA-Public Use
  Company Number: US-ASTELLAS-2011US000889

PATIENT
  Age: 23 Year
  Sex: Male
  Weight: 71 kg

DRUGS (2)
  1. AMEVIVE [Suspect]
     Indication: RENAL TRANSPLANT
     Dosage: 15 MG, WEEKLY
     Route: 058
     Dates: start: 20101007, end: 20110203
  2. AMEVIVE [Suspect]
     Dosage: 15 MG, MONTHLY
     Route: 058

REACTIONS (2)
  - PYREXIA [None]
  - NEUTROPENIA [None]
